FAERS Safety Report 9124928 (Version 2)
Quarter: 2013Q1

REPORT INFORMATION
  Report Type: Spontaneous
  Country: US (occurrence: US)
  Receive Date: 20130227
  Receipt Date: 20130319
  Transmission Date: 20140127
  Serious: Yes (Other)
  Sender: FDA-Public Use
  Company Number: CHPA2013US003426

PATIENT
  Age: 49 Year
  Sex: Female

DRUGS (2)
  1. TRIAMINIC FEVER REDUCER PAIN RELIEVER [Suspect]
     Indication: PAIN MANAGEMENT
     Dosage: UNK, UNK
     Route: 048
  2. TRIAMINIC FEVER REDUCER PAIN RELIEVER [Suspect]
     Indication: HEADACHE

REACTIONS (2)
  - Foot fracture [Not Recovered/Not Resolved]
  - Off label use [Unknown]
